FAERS Safety Report 4496883-X (Version None)
Quarter: 2004Q4

REPORT INFORMATION
  Report Type: 
  Country: None (occurrence: None)
  Receive Date: 20040928
  Receipt Date: 20040716
  Transmission Date: 20050328
  Serious: No
  Sender: FDA-Public Use
  Company Number: 04P-163-0268062-00

PATIENT
  Age: 40 Year
  Sex: Female
  Weight: 61.2356 kg

DRUGS (5)
  1. HUMIRA [Suspect]
     Indication: RHEUMATOID ARTHRITIS
     Dosage: 40 MG, 1 IN 2 WK, SUBCUTANEOUS
     Route: 058
     Dates: start: 20040615
  2. PREDNISONE [Concomitant]
  3. IBUPROFEN [Concomitant]
  4. MULTIVITAMIN [Concomitant]
  5. GINSENG [Concomitant]

REACTIONS (3)
  - DRUG INEFFECTIVE [None]
  - ERYTHEMA [None]
  - JOINT SWELLING [None]
